FAERS Safety Report 6589808-4 (Version None)
Quarter: 2010Q1

REPORT INFORMATION
  Report Type: 
  Country: None (occurrence: None)
  Receive Date: 20100212
  Receipt Date: 20100125
  Transmission Date: 20100710
  Serious: Yes (Other)
  Sender: FDA-Public Use
  Company Number: HA09-112-AE

PATIENT
  Age: 58 Year
  Sex: Female
  Weight: 62.5964 kg

DRUGS (3)
  1. SMZ / TMP TABLETS, USP 800 MG / 160 MG (AMNEAL) [Suspect]
     Indication: ARTHROPOD BITE
     Dosage: 1 TAB BID, ORAL
     Route: 048
     Dates: start: 20090424, end: 20090428
  2. ESTRADIOL (HORMONE REPLACEMENT THERAPY) [Concomitant]
  3. MEDROL [Concomitant]

REACTIONS (12)
  - BLOOD PH INCREASED [None]
  - CYANOSIS [None]
  - DRUG ERUPTION [None]
  - DRUG HYPERSENSITIVITY [None]
  - DYSPNOEA [None]
  - FEELING ABNORMAL [None]
  - METHAEMOGLOBINAEMIA [None]
  - NAUSEA [None]
  - OXYGEN SATURATION DECREASED [None]
  - PALPITATIONS [None]
  - RASH GENERALISED [None]
  - RASH PAPULAR [None]
